FAERS Safety Report 24173529 (Version 2)
Quarter: 2025Q1

REPORT INFORMATION
  Report Type: Spontaneous
  Country: US (occurrence: US)
  Receive Date: 20240805
  Receipt Date: 20250108
  Transmission Date: 20250409
  Serious: Yes (Other)
  Sender: Kilitch Healthcare
  Company Number: US-KHC-000057

PATIENT
  Sex: Female

DRUGS (1)
  1. POLYETHYLENE GLYCOL 0.4% AND PROPYLENE GLYCOL 0.3% [Suspect]
     Active Substance: HYPROMELLOSE 2910 (4000 MPA.S)
     Indication: Product used for unknown indication
     Route: 065

REACTIONS (3)
  - Eye irritation [Not Recovered/Not Resolved]
  - Blindness unilateral [Unknown]
  - Recalled product administered [Unknown]
